FAERS Safety Report 8206395-5 (Version None)
Quarter: 2012Q1

REPORT INFORMATION
  Report Type: 
  Country: None (occurrence: None)
  Receive Date: 20120313
  Receipt Date: 20120307
  Transmission Date: 20120608
  Serious: Yes (Disabling, Other)
  Sender: FDA-Public Use
  Company Number: PHEH2012US002388

PATIENT
  Sex: Female
  Weight: 140 kg

DRUGS (6)
  1. ORTHO-NOVUM [Concomitant]
     Indication: CONTRACEPTION
     Dosage: UNK OT, QD
  2. CLARITIN [Concomitant]
     Dosage: UNK OT, QD
  3. NORCO [Concomitant]
     Indication: INTERVERTEBRAL DISC PROTRUSION
     Route: 048
     Dates: start: 20110905
  4. TIZANIDINE HCL [Concomitant]
     Indication: MUSCLE SPASMS
     Dates: start: 20111001
  5. BACLOFEN [Concomitant]
     Indication: MUSCLE SPASMS
     Route: 048
  6. GILENYA [Suspect]
     Indication: MULTIPLE SCLEROSIS
     Dosage: 0.5 MG, QD
     Route: 048
     Dates: start: 20120126, end: 20120214

REACTIONS (5)
  - MULTIPLE SCLEROSIS RELAPSE [None]
  - HYPERTENSION [None]
  - DIZZINESS [None]
  - CENTRAL NERVOUS SYSTEM LESION [None]
  - BLOOD PRESSURE DECREASED [None]
